FAERS Safety Report 13362680 (Version 1)
Quarter: 2017Q1

REPORT INFORMATION
  Report Type: Spontaneous
  Country: US (occurrence: US)
  Receive Date: 20170322
  Receipt Date: 20170322
  Transmission Date: 20170429
  Serious: Yes (Hospitalization)
  Sender: FDA-Public Use
  Company Number: None

PATIENT
  Age: 72 Year
  Sex: Male

DRUGS (1)
  1. AMOXICILLIN/CLAVULANATE [Suspect]
     Active Substance: AMOXICILLIN\CLAVULANATE POTASSIUM
     Indication: TOOTH ABSCESS
     Route: 048
     Dates: start: 20170310, end: 20170312

REACTIONS (9)
  - Pyrexia [None]
  - Viral rash [None]
  - Adverse drug reaction [None]
  - Coronavirus test positive [None]
  - Eosinophil count increased [None]
  - Pallor [None]
  - Rash erythematous [None]
  - Hypotension [None]
  - Drug eruption [None]

NARRATIVE: CASE EVENT DATE: 20170312
